FAERS Safety Report 23827063 (Version 1)
Quarter: 2024Q2

REPORT INFORMATION
  Report Type: Spontaneous
  Country: US (occurrence: US)
  Receive Date: 20240507
  Receipt Date: 20240507
  Transmission Date: 20240715
  Serious: Yes (Life-Threatening, Hospitalization)
  Sender: FDA-Public Use
  Company Number: US-STRIDES ARCOLAB LIMITED-2024SP005227

PATIENT
  Age: 32 Year
  Sex: Female

DRUGS (2)
  1. TACROLIMUS [Suspect]
     Active Substance: TACROLIMUS
     Indication: Immunosuppressant drug therapy
     Dosage: UNK
     Route: 065
  2. TACROLIMUS [Suspect]
     Active Substance: TACROLIMUS
     Indication: Liver transplant

REACTIONS (6)
  - Cardiomyopathy [Recovered/Resolved]
  - Depressed level of consciousness [Unknown]
  - Right ventricular failure [Recovered/Resolved]
  - Cardiogenic shock [Recovered/Resolved]
  - Generalised tonic-clonic seizure [Unknown]
  - Respiratory failure [Unknown]
